FAERS Safety Report 8997798 (Version 1)
Quarter: 2013Q1

REPORT INFORMATION
  Report Type: Report from Study
  Country: DE (occurrence: DE)
  Receive Date: 20130104
  Receipt Date: 20130104
  Transmission Date: 20140127
  Serious: Yes (Hospitalization, Disabling)
  Sender: FDA-Public Use
  Company Number: DE-ROCHE-1175606

PATIENT
  Sex: Male

DRUGS (17)
  1. ALTEPLASE [Suspect]
     Indication: PERIPHERAL ARTERIAL OCCLUSIVE DISEASE
     Dosage: THERAPY DURATION: 60 MIN
     Route: 013
  2. HEPARIN [Concomitant]
     Route: 058
     Dates: start: 19931203, end: 19931213
  3. HEPARIN [Concomitant]
     Route: 042
     Dates: start: 19931213, end: 19931214
  4. ISMO [Concomitant]
     Indication: CARDIAC FAILURE
     Route: 048
     Dates: start: 19931101
  5. TRAMAL [Concomitant]
     Route: 048
     Dates: start: 19931101
  6. VALORON [Concomitant]
     Route: 048
     Dates: start: 19931212, end: 19931212
  7. EMOVATE [Concomitant]
     Route: 065
     Dates: start: 19931205, end: 19931213
  8. BRAUNOVIDON [Concomitant]
     Route: 065
     Dates: start: 19931214
  9. KALIUM DURULES [Concomitant]
     Indication: CARDIAC FAILURE
     Route: 048
     Dates: start: 19931101
  10. ROHYPNOL [Concomitant]
     Route: 048
     Dates: start: 19931213, end: 19931213
  11. LANITOP [Concomitant]
     Route: 048
     Dates: start: 19931025
  12. ASS-100 [Concomitant]
     Indication: ANGIOSCLEROSIS
     Route: 048
     Dates: start: 19931214
  13. EUGLUCON N [Concomitant]
     Indication: DIABETES MELLITUS
     Route: 048
     Dates: start: 1989
  14. XANEF [Concomitant]
     Indication: CARDIAC FAILURE
     Route: 048
     Dates: start: 19931119
  15. LASIX [Concomitant]
     Indication: CARDIAC FAILURE
     Route: 048
  16. TARIVID [Concomitant]
     Indication: CARDIAC FAILURE
     Route: 048
     Dates: start: 19931207
  17. PROSTAVASIN [Concomitant]
     Indication: CARDIAC FAILURE
     Route: 042
     Dates: start: 19931123

REACTIONS (2)
  - Necrosis [Recovered/Resolved with Sequelae]
  - Peripheral artery thrombosis [Recovered/Resolved with Sequelae]
